FAERS Safety Report 4891056-0 (Version None)
Quarter: 2006Q1

REPORT INFORMATION
  Report Type: 
  Country: None (occurrence: None)
  Receive Date: 20060125
  Receipt Date: 20051109
  Transmission Date: 20060701
  Serious: Yes (Other)
  Sender: FDA-Public Use
  Company Number: PHEH2005US12434

PATIENT
  Age: 12 Year
  Sex: Female
  Weight: 43.083 kg

DRUGS (1)
  1. TRILEPTAL [Suspect]
     Indication: CONVULSION
     Dosage: 300 MG, BID
     Route: 048
     Dates: start: 20000101

REACTIONS (5)
  - ANTINUCLEAR ANTIBODY POSITIVE [None]
  - BLOOD IMMUNOGLOBULIN G [None]
  - IDIOPATHIC THROMBOCYTOPENIC PURPURA [None]
  - PLATELET COUNT DECREASED [None]
  - PURPURA [None]
